FAERS Safety Report 4594922-9 (Version None)
Quarter: 2005Q1

REPORT INFORMATION
  Report Type: 
  Country: None (occurrence: None)
  Receive Date: 20050223
  Receipt Date: 20041102
  Transmission Date: 20050727
  Serious: Yes (Death, Other)
  Sender: FDA-Public Use
  Company Number: 2004211320GB

PATIENT
  Age: 79 Year
  Sex: Female
  Weight: 76.0229 kg

DRUGS (8)
  1. BEXTRA [Suspect]
     Indication: BACK PAIN
     Dosage: 20 MG (20 MG, 1 IN 1 D), ORAL
     Route: 048
     Dates: start: 20040212, end: 20040330
  2. AMLODIPINE [Concomitant]
  3. BENDROFLUMETHIAZIDE [Concomitant]
  4. DICLOFENAC [Concomitant]
  5. ETORICOXIB [Concomitant]
  6. NIFEDIPINE [Concomitant]
  7. ACETYLSALICYLIC ACID [Concomitant]
  8. PARACETAMOL [Concomitant]

REACTIONS (11)
  - CIRCULATORY COLLAPSE [None]
  - CONTUSION [None]
  - DIARRHOEA [None]
  - DYSPNOEA [None]
  - GASTROINTESTINAL STROMAL TUMOUR [None]
  - LACERATION [None]
  - PHOTOSENSITIVITY REACTION [None]
  - RASH MACULAR [None]
  - SUDDEN DEATH [None]
  - SWELLING FACE [None]
  - VOMITING [None]
